FAERS Safety Report 19419214 (Version 1)
Quarter: 2021Q2

REPORT INFORMATION
  Report Type: Spontaneous
  Country: AR (occurrence: AR)
  Receive Date: 20210615
  Receipt Date: 20210615
  Transmission Date: 20210717
  Serious: Yes (Other)
  Sender: FDA-Public Use
  Company Number: AR-PFIZER INC-2021641010

PATIENT
  Age: 76 Year
  Sex: Male

DRUGS (2)
  1. SUTENT [Suspect]
     Active Substance: SUNITINIB MALATE
     Indication: METASTATIC RENAL CELL CARCINOMA
     Dosage: UNKNOWN DOSE, CYCLIC (SCHEME 2/1)
     Dates: start: 20210227, end: 2021
  2. SUTENT [Suspect]
     Active Substance: SUNITINIB MALATE
     Dosage: UNKNOWN DOSE, CYCLIC (SCHEME 4/2)
     Dates: start: 2021, end: 2021

REACTIONS (1)
  - Blood count abnormal [Unknown]

NARRATIVE: CASE EVENT DATE: 2021
